FAERS Safety Report 10170069 (Version 1)
Quarter: 2014Q2

REPORT INFORMATION
  Report Type: Report from Study
  Country: US (occurrence: US)
  Receive Date: 20140513
  Receipt Date: 20140513
  Transmission Date: 20141212
  Serious: Yes (Hospitalization, Other)
  Sender: FDA-Public Use
  Company Number: US-TEVA-481161USA

PATIENT
  Age: 17 Year
  Sex: Female

DRUGS (3)
  1. CLOZAPINE [Suspect]
     Indication: HALLUCINATION
     Route: 048
  2. CLOZAPINE [Suspect]
     Indication: MENTAL RETARDATION
  3. CLOZAPINE [Suspect]
     Indication: SELF INJURIOUS BEHAVIOUR

REACTIONS (6)
  - Convulsion [Unknown]
  - Fall [Unknown]
  - Head injury [Unknown]
  - Toxicity to various agents [Unknown]
  - White blood cell count decreased [Unknown]
  - Neutrophil count decreased [Unknown]
